FAERS Safety Report 10149814 (Version 1)
Quarter: 2014Q2

REPORT INFORMATION
  Report Type: Spontaneous
  Country: US (occurrence: None)
  Receive Date: 20140501
  Receipt Date: 20140501
  Transmission Date: 20141212
  Serious: Yes (Hospitalization)
  Sender: FDA-Public Use
  Company Number: None

PATIENT
  Age: 23 Year
  Sex: Female

DRUGS (11)
  1. TECHNETIUM TC-99M ALBUMIN AGGREGATED [Suspect]
     Indication: PULMONARY EMBOLISM
     Dosage: ONCE  PO
     Route: 048
     Dates: start: 20131111, end: 20131111
  2. DTPA [Suspect]
  3. DIPHENHYDRAMINE [Concomitant]
  4. ESCITALOPRAM [Concomitant]
  5. FAMOTIDINE [Concomitant]
  6. HYDROMORPHONE [Concomitant]
  7. IBUPROFEN [Concomitant]
  8. MONTELUKAST [Concomitant]
  9. MORPHINE [Concomitant]
  10. TEMAZEPAM [Concomitant]
  11. TRAMADOL [Concomitant]

REACTIONS (4)
  - Feeling abnormal [None]
  - Urticaria [None]
  - Cardio-respiratory arrest [None]
  - Dyspnoea [None]
